FAERS Safety Report 16313195 (Version 1)
Quarter: 2019Q2

REPORT INFORMATION
  Report Type: Spontaneous
  Country: GB (occurrence: GB)
  Receive Date: 20190515
  Receipt Date: 20190515
  Transmission Date: 20190711
  Serious: Yes (Other)
  Sender: FDA-Public Use
  Company Number: GB-SA-2019SA127795

PATIENT
  Sex: Female

DRUGS (1)
  1. STILNOCT [Suspect]
     Active Substance: ZOLPIDEM TARTRATE

REACTIONS (6)
  - Hyperthyroidism [Unknown]
  - Feeling jittery [Unknown]
  - Restlessness [Unknown]
  - Heart rate increased [Unknown]
  - Anxiety [Unknown]
  - Agitation [Unknown]
